FAERS Safety Report 5281234-3 (Version None)
Quarter: 2007Q1

REPORT INFORMATION
  Report Type: 
  Country: None (occurrence: None)
  Receive Date: 20070323
  Receipt Date: 20070307
  Transmission Date: 20070707
  Serious: Yes (Hospitalization)
  Sender: FDA-Public Use
  Company Number: DSA_29563_2007

PATIENT
  Age: 65 Year
  Sex: Female

DRUGS (6)
  1. TEMESTA [Suspect]
     Dosage: 1 MG Q DAY PO
     Route: 048
     Dates: end: 20070122
  2. EFFEXOR [Suspect]
     Indication: DEPRESSION
     Dosage: DF PO
     Route: 048
     Dates: start: 20070111, end: 20070116
  3. ACUPAN [Suspect]
     Dosage: DF IV
     Route: 042
     Dates: end: 20070122
  4. NEXIUM [Suspect]
     Dosage: DF PO
     Route: 048
     Dates: end: 20070114
  5. LOXEN [Suspect]
     Dosage: DF PO
     Route: 048
     Dates: start: 20070111, end: 20070116
  6. PERFALGAN [Suspect]
     Dosage: 4MG Q DAY IV
     Route: 042
     Dates: start: 20070111, end: 20070116

REACTIONS (5)
  - BONE MARROW FAILURE [None]
  - HISTIOCYTOSIS HAEMATOPHAGIC [None]
  - LEUKOPENIA [None]
  - NEUTROPENIA [None]
  - WHITE BLOOD CELL COUNT INCREASED [None]
